FAERS Safety Report 8611653-6 (Version None)
Quarter: 2012Q3

REPORT INFORMATION
  Report Type: 
  Country: None (occurrence: None)
  Receive Date: 20120822
  Receipt Date: 20120817
  Transmission Date: 20120928
  Serious: No
  Sender: FDA-Public Use
  Company Number: US-PFIZER INC-2012202633

PATIENT
  Age: 65 Year
  Sex: Male
  Weight: 79.365 kg

DRUGS (4)
  1. TIZANIDINE [Concomitant]
     Dosage: 4 MG, AS NEEDED
  2. RELPAX [Suspect]
     Indication: HEADACHE
  3. RELPAX [Suspect]
     Indication: MIGRAINE
     Dosage: 40 MG, AS NEEDED
     Route: 048
  4. VOLTAREN [Concomitant]
     Indication: INFLAMMATION
     Dosage: 75 MG, 2X/DAY

REACTIONS (2)
  - DRUG INEFFECTIVE [None]
  - STRESS [None]
